FAERS Safety Report 9603110 (Version 2)
Quarter: 2013Q4

REPORT INFORMATION
  Report Type: Spontaneous
  Country: IT (occurrence: IT)
  Receive Date: 20131007
  Receipt Date: 20131011
  Transmission Date: 20140711
  Serious: Yes (Hospitalization)
  Sender: FDA-Public Use
  Company Number: IT-VIIV HEALTHCARE LIMITED-B0927698A

PATIENT
  Age: 57 Year
  Sex: Male

DRUGS (2)
  1. MARAVIROC [Suspect]
     Indication: HIV INFECTION
     Dosage: 150MG TWICE PER DAY
     Route: 048
  2. AMLODIPINE [Concomitant]
     Dates: start: 20100601

REACTIONS (2)
  - Delirium [Recovering/Resolving]
  - Psychomotor hyperactivity [Recovering/Resolving]
